FAERS Safety Report 23521427 (Version 1)
Quarter: 2024Q1

REPORT INFORMATION
  Report Type: Spontaneous
  Country: US (occurrence: US)
  Receive Date: 20240214
  Receipt Date: 20240214
  Transmission Date: 20240410
  Serious: No
  Sender: FDA-Public Use
  Company Number: US-862174955-ML2024-00797

PATIENT
  Sex: Female

DRUGS (3)
  1. DORZOLAMIDE HYDROCHLORIDE OPHTHALMIC SOLUTION [Suspect]
     Active Substance: DORZOLAMIDE HYDROCHLORIDE
     Indication: Glaucoma
     Dosage: PURCHASED ON 16 NOV 2023
  2. DORZOLAMIDE HYDROCHLORIDE OPHTHALMIC SOLUTION [Suspect]
     Active Substance: DORZOLAMIDE HYDROCHLORIDE
     Dosage: PURCHASED ON 01 FEB 2024
     Route: 047
  3. DORZOLAMIDE HYDROCHLORIDE OPHTHALMIC SOLUTION [Suspect]
     Active Substance: DORZOLAMIDE HYDROCHLORIDE
     Dosage: PURCHASED ON 21 SEP 2023

REACTIONS (3)
  - Product dose omission issue [Unknown]
  - Product container issue [Unknown]
  - No adverse event [Unknown]
